FAERS Safety Report 8923679 (Version 1)
Quarter: 2012Q4

REPORT INFORMATION
  Report Type: Spontaneous
  Country: GB (occurrence: None)
  Receive Date: 20121115
  Receipt Date: 20121115
  Transmission Date: 20130627
  Serious: Yes (Hospitalization, Other)
  Sender: FDA-Public Use
  Company Number: VAL_00992_2012

PATIENT
  Age: 44 Year
  Sex: Female

DRUGS (5)
  1. METOPROLOL [Suspect]
     Indication: HYPERTENSION
  2. HYDRALAZINE [Suspect]
     Indication: HYPERTENSION
  3. RAMIPRIL [Concomitant]
  4. DRUGS FOR TREATMENT OF HYPOGLYCEMIA [Concomitant]
  5. PHENOXYBENZAMINE [Concomitant]

REACTIONS (5)
  - Tachycardia [None]
  - Acute pulmonary oedema [None]
  - Ejection fraction decreased [None]
  - Epinephrine increased [None]
  - Norepinephrine increased [None]
